FAERS Safety Report 9587791 (Version 1)
Quarter: 2013Q4

REPORT INFORMATION
  Report Type: Report from Study
  Country: US (occurrence: US)
  Receive Date: 20131003
  Receipt Date: 20131003
  Transmission Date: 20140711
  Serious: Yes (Other)
  Sender: FDA-Public Use
  Company Number: US-PFIZER INC-2013277058

PATIENT
  Age: 3 Year
  Sex: Male

DRUGS (3)
  1. IRINOTECAN HCL [Suspect]
     Indication: GLIOMA
     Dosage: 125 MG/M2 WEEKLY FOR 2 WEEKS FOLLOWED BY 1 WEEK BREAK, CYCLES
  2. TEMOZOLOMIDE [Suspect]
     Indication: GLIOMA
     Dosage: 75 MG/M2/DAY GIVEN MONDAY THROUGH FRIDAY CONTINUOUSLY, CYCLIC
     Route: 048
  3. BEVACIZUMAB [Suspect]
     Indication: GLIOMA
     Dosage: 15 MG/KG/DOSE EVERY THREE WEEKS, CYCLIC

REACTIONS (4)
  - Tumour haemorrhage [Unknown]
  - Neutropenia [Unknown]
  - Diarrhoea [Unknown]
  - Muscle spasms [Unknown]
